FAERS Safety Report 18027319 (Version 3)
Quarter: 2020Q3

REPORT INFORMATION
  Report Type: Spontaneous
  Country: JP (occurrence: JP)
  Receive Date: 20200715
  Receipt Date: 20200730
  Transmission Date: 20201103
  Serious: Yes (Life-Threatening, Hospitalization)
  Sender: FDA-Public Use
  Company Number: JP-FERRINGPH-2020FE04555

PATIENT
  Age: 85 Year
  Sex: Male

DRUGS (8)
  1. OHNES N [Concomitant]
     Route: 065
  2. FLIVAS [Concomitant]
     Active Substance: NAFTOPIDIL
     Route: 048
  3. MINIRINMELT [Suspect]
     Active Substance: DESMOPRESSIN ACETATE
     Indication: NOCTURIA
     Dosage: 50 UG
     Route: 048
     Dates: start: 20200613, end: 20200616
  4. LANSOPRAZOLE. [Concomitant]
     Active Substance: LANSOPRAZOLE
     Route: 048
  5. DAIKENCHUTO [Concomitant]
     Active Substance: HERBALS
     Dosage: 50 UG
     Route: 048
  6. REBAMIPIDE [Concomitant]
     Active Substance: REBAMIPIDE
     Route: 048
  7. AVOLVE [Concomitant]
     Active Substance: DUTASTERIDE
     Route: 048
  8. BELSOMRA [Concomitant]
     Active Substance: SUVOREXANT
     Route: 048

REACTIONS (2)
  - Water intoxication [Recovering/Resolving]
  - Hyponatraemia [Not Recovered/Not Resolved]

NARRATIVE: CASE EVENT DATE: 20200614
